FAERS Safety Report 17070525 (Version 2)
Quarter: 2020Q1

REPORT INFORMATION
  Report Type: Spontaneous
  Country: MY (occurrence: MY)
  Receive Date: 20191125
  Receipt Date: 20200204
  Transmission Date: 20200409
  Serious: Yes (Hospitalization, Other)
  Sender: FDA-Public Use
  Company Number: MY-PFIZER INC-2019474352

PATIENT
  Age: 58 Year
  Sex: Female

DRUGS (1)
  1. CONTROLOC [Suspect]
     Active Substance: PANTOPRAZOLE SODIUM
     Dosage: 40 MILLIGRAM
     Route: 042

REACTIONS (2)
  - Phlebitis [Unknown]
  - Upper gastrointestinal haemorrhage [Unknown]
